FAERS Safety Report 8276973-6 (Version None)
Quarter: 2012Q2

REPORT INFORMATION
  Report Type: 
  Country: None (occurrence: None)
  Receive Date: 20120406
  Receipt Date: 20120330
  Transmission Date: 20120825
  Serious: Yes (Hospitalization)
  Sender: FDA-Public Use
  Company Number: 2011SP046143

PATIENT
  Age: 16 Year
  Sex: Female

DRUGS (3)
  1. NEXPLANON [Suspect]
  2. NEXPLANON [Suspect]
     Indication: PRODUCT USED FOR UNKNOWN INDICATION
     Dosage: 1 DF; 1 DF
     Dates: start: 20110910
  3. NEXPLANON [Suspect]
     Indication: PRODUCT USED FOR UNKNOWN INDICATION
     Dosage: 1 DF; 1 DF
     Dates: start: 20100325, end: 20110910

REACTIONS (4)
  - HYPOGLYCAEMIA [None]
  - IMPLANT SITE CELLULITIS [None]
  - DEVICE DAMAGE [None]
  - DEVICE DIFFICULT TO USE [None]
